FAERS Safety Report 5927159-9 (Version None)
Quarter: 2008Q4

REPORT INFORMATION
  Report Type: 
  Country: None (occurrence: None)
  Receive Date: 20081022
  Receipt Date: 20081013
  Transmission Date: 20090506
  Serious: Yes (Other)
  Sender: FDA-Public Use
  Company Number: GB-AMGEN-UK313213

PATIENT
  Age: 5 Month
  Sex: Female

DRUGS (5)
  1. KEPIVANCE [Suspect]
     Indication: AUTOIMMUNE DISORDER
     Dates: start: 20081010
  2. CYCLOPHOSPHAMIDE [Suspect]
     Dates: start: 20081009, end: 20081012
  3. IMMUNE GLOBULIN NOS [Suspect]
  4. CYCLOSPORINE [Suspect]
  5. TREOSULFAN [Concomitant]

REACTIONS (2)
  - CONVULSION [None]
  - RASH [None]
